FAERS Safety Report 8238301 (Version 3)
Quarter: 2013Q2

REPORT INFORMATION
  Report Type: Spontaneous
  Country: US (occurrence: US)
  Receive Date: 20111109
  Receipt Date: 20130626
  Transmission Date: 20140414
  Serious: Yes (Other)
  Sender: FDA-Public Use
  Company Number: CHPA2011US15261

PATIENT
  Age: 107 Year
  Sex: Female

DRUGS (3)
  1. VOLTAREN GEL [Suspect]
     Indication: MUSCULOSKELETAL PAIN
     Dosage: UNK, UNK
     Route: 061
  2. VOLTAREN GEL [Suspect]
     Dosage: SMALL AMOUNT, 2-3 TIMES DAILY
     Route: 061
     Dates: start: 20111023, end: 20111030
  3. LIDODERM [Concomitant]
     Indication: PAIN
     Dosage: UNK
     Route: 062

REACTIONS (7)
  - Blister infected [Not Recovered/Not Resolved]
  - Rash macular [Not Recovered/Not Resolved]
  - Blister [Not Recovered/Not Resolved]
  - Erythema [Not Recovered/Not Resolved]
  - Pruritus [Not Recovered/Not Resolved]
  - Off label use [Unknown]
  - Drug administered at inappropriate site [Unknown]
